FAERS Safety Report 25846937 (Version 2)
Quarter: 2025Q3

REPORT INFORMATION
  Report Type: Report from Study
  Country: EU (occurrence: EU)
  Receive Date: 20250925
  Receipt Date: 20250926
  Transmission Date: 20251020
  Serious: No
  Sender: TRAVERE THERAPEUTICS
  Company Number: EU-BEH-2025211715

PATIENT
  Sex: Female

DRUGS (1)
  1. FILSPARI [Suspect]
     Active Substance: SPARSENTAN
     Indication: Product used for unknown indication
     Route: 065
     Dates: end: 20250702

REACTIONS (4)
  - Face oedema [Unknown]
  - Oedema peripheral [Unknown]
  - Hypotension [Unknown]
  - Malaise [Unknown]
